FAERS Safety Report 8348221-X (Version None)
Quarter: 2012Q2

REPORT INFORMATION
  Report Type: 
  Country: None (occurrence: None)
  Receive Date: 20120509
  Receipt Date: 20120504
  Transmission Date: 20120825
  Serious: Yes (Hospitalization)
  Sender: FDA-Public Use
  Company Number: PHHY2012DE038724

PATIENT
  Age: 31 Year
  Sex: Female

DRUGS (2)
  1. COTRIM [Suspect]
  2. HYDROXYCHLOROQUINE [Suspect]

REACTIONS (3)
  - TOXIC EPIDERMAL NECROLYSIS [None]
  - STEVENS-JOHNSON SYNDROME [None]
  - PIGMENTATION DISORDER [None]
